FAERS Safety Report 11705186 (Version 1)
Quarter: 2015Q4

REPORT INFORMATION
  Report Type: Spontaneous
  Country: CA (occurrence: CA)
  Receive Date: 20151106
  Receipt Date: 20151106
  Transmission Date: 20160304
  Serious: Yes (Other)
  Sender: FDA-Public Use
  Company Number: CA-009507513-1510CAN014603

PATIENT
  Age: 15 Year
  Sex: Female

DRUGS (1)
  1. NUVARING [Suspect]
     Active Substance: ETHINYL ESTRADIOL\ETONOGESTREL
     Dosage: UNK
     Route: 067

REACTIONS (5)
  - Ovarian disorder [Unknown]
  - Drug ineffective [Unknown]
  - Colitis ulcerative [Unknown]
  - Post-traumatic stress disorder [Unknown]
  - Device expulsion [Unknown]

NARRATIVE: CASE EVENT DATE: 2008
